FAERS Safety Report 12204181 (Version 1)
Quarter: 2016Q1

REPORT INFORMATION
  Report Type: Spontaneous
  Country: US (occurrence: None)
  Receive Date: 20160322
  Receipt Date: 20160322
  Transmission Date: 20160526
  Serious: Yes (Other)
  Sender: FDA-Public Use
  Company Number: None

PATIENT
  Age: 50 Year
  Sex: Male
  Weight: 95.26 kg

DRUGS (1)
  1. GEODON [Suspect]
     Active Substance: ZIPRASIDONE HYDROCHLORIDE\ZIPRASIDONE MESYLATE
     Indication: MENTAL DISORDER
     Dosage: 60MG ONE MOUTH
     Route: 048
     Dates: end: 20160307

REACTIONS (4)
  - Dry mouth [None]
  - Dysphagia [None]
  - Heart rate increased [None]
  - Dry throat [None]

NARRATIVE: CASE EVENT DATE: 20160307
